FAERS Safety Report 13284535 (Version 2)
Quarter: 2017Q2

REPORT INFORMATION
  Report Type: Spontaneous
  Country: DE (occurrence: DE)
  Receive Date: 20170301
  Receipt Date: 20170411
  Transmission Date: 20170830
  Serious: Yes (Hospitalization, Other)
  Sender: FDA-Public Use
  Company Number: DE-PFIZER INC-2017084574

PATIENT
  Age: 56 Year
  Sex: Male
  Weight: 80 kg

DRUGS (7)
  1. BISOPROLOL [Concomitant]
     Active Substance: BISOPROLOL
     Indication: HYPERTENSION
     Dosage: 5 MG TABLETS, DAILY
  2. MOVICOL [Concomitant]
     Active Substance: POLYETHYLENE GLYCOL 3350\POTASSIUM CHLORIDE\SODIUM BICARBONATE\SODIUM CHLORIDE
     Dosage: UNK UNK, 1X/DAY
  3. VALSARTAN. [Concomitant]
     Active Substance: VALSARTAN
     Indication: HYPERTENSION
     Dosage: 160 MG TABLETS, DAILY
  4. DEKRISTOL [Concomitant]
     Active Substance: CHOLECALCIFEROL
     Indication: VITAMIN D DEFICIENCY
     Dosage: 20,000 IU CAPSULES, 1X/WEEK
     Dates: start: 201609
  5. PANTOPRAZOL [Concomitant]
     Active Substance: PANTOPRAZOLE SODIUM
     Dosage: 20 MG TABLETS, DAILY
     Dates: end: 201703
  6. AMLODIPINE [Concomitant]
     Active Substance: AMLODIPINE BESYLATE
     Indication: HYPERTENSION
     Dosage: 5 MG TABLETS, DAILY
  7. SUTENT [Suspect]
     Active Substance: SUNITINIB MALATE
     Indication: METASTATIC RENAL CELL CARCINOMA
     Dosage: 50 MG 1X/DAY, CYCLIC (2+1 SCHEME; 2 WEEKS ON, 1 WEEK OFF)
     Route: 048
     Dates: start: 20160919, end: 20170207

REACTIONS (11)
  - Haemorrhagic disorder [Unknown]
  - Septic shock [Unknown]
  - Appendicitis [Unknown]
  - Haemolytic anaemia [Unknown]
  - Jaundice [Unknown]
  - Condition aggravated [Unknown]
  - Hyperbilirubinaemia [Recovered/Resolved]
  - Thrombocytopenia [Recovered/Resolved]
  - Vomiting [Unknown]
  - Epistaxis [Unknown]
  - Escherichia bacteraemia [Unknown]

NARRATIVE: CASE EVENT DATE: 201610
